FAERS Safety Report 5494036-X (Version None)
Quarter: 2007Q4

REPORT INFORMATION
  Report Type: 
  Country: None (occurrence: None)
  Receive Date: 20071023
  Receipt Date: 20071014
  Transmission Date: 20080405
  Serious: Yes (Other)
  Sender: FDA-Public Use
  Company Number: US-PFIZER INC-2007086055

PATIENT
  Sex: Female
  Weight: 52.272 kg

DRUGS (5)
  1. LYRICA [Suspect]
     Indication: NEURALGIA
     Dosage: FREQ:EVERYDAY
     Route: 048
     Dates: start: 20071001, end: 20071014
  2. ANTIHYPERTENSIVES [Concomitant]
     Indication: HYPERTENSION
     Route: 048
  3. DARVOCET [Concomitant]
     Route: 048
  4. XANAX [Concomitant]
     Route: 048
  5. PLETAL [Concomitant]
     Route: 048

REACTIONS (4)
  - ABASIA [None]
  - FALL [None]
  - SUICIDAL IDEATION [None]
  - TREMOR [None]
